FAERS Safety Report 5158781-8 (Version None)
Quarter: 2006Q4

REPORT INFORMATION
  Report Type: 
  Country: None (occurrence: None)
  Receive Date: 20061128
  Receipt Date: 20061115
  Transmission Date: 20070319
  Serious: Yes (Hospitalization)
  Sender: FDA-Public Use
  Company Number: DK-ELI_LILLY_AND_COMPANY-DK200611002856

PATIENT
  Age: 65 Year
  Sex: Male
  Weight: 86 kg

DRUGS (7)
  1. TERIPARATIDE [Suspect]
     Indication: OSTEOPOROSIS
     Dosage: 20 UG, UNKNOWN
     Route: 058
     Dates: start: 20061109
  2. HUMATROPE [Suspect]
     Indication: GROWTH HORMONE DEFICIENCY
  3. DUROGESIC /DEN/ [Concomitant]
     Indication: PAIN
     Route: 062
  4. HYDROCORTISON [Concomitant]
  5. ELTROXIN [Concomitant]
     Indication: METABOLIC DISORDER
  6. MINIRIN ^AVENTIS PHARMA^ [Concomitant]
     Indication: OLIGURIA
     Route: 048
  7. ANDRIOL [Concomitant]
     Indication: BLOOD TESTOSTERONE

REACTIONS (7)
  - FALL [None]
  - HEADACHE [None]
  - HYPERTENSION [None]
  - NEPHROLITHIASIS [None]
  - PAIN [None]
  - PYREXIA [None]
  - STOMACH DISCOMFORT [None]
